FAERS Safety Report 11528618 (Version 1)
Quarter: 2015Q3

REPORT INFORMATION
  Report Type: Spontaneous
  Country: ES (occurrence: None)
  Receive Date: 20150917
  Receipt Date: 20150917
  Transmission Date: 20151125
  Serious: Yes (Hospitalization, Other)
  Sender: FDA-Public Use
  Company Number: ES-ZYDUS-008979

PATIENT
  Sex: Male

DRUGS (2)
  1. LEVOFLOXACIN (LEVOFLOXACIN) [Suspect]
     Active Substance: LEVOFLOXACIN
     Indication: STENOTROPHOMONAS INFECTION
     Dosage: 8.5-MG/KG-1.00 TIMES PER-12.0HOURS
  2. COTRIMOXAZOLE [Suspect]
     Active Substance: SULFAMETHOXAZOLE\TRIMETHOPRIM
     Indication: PRODUCT USED FOR UNKNOWN INDICATION

REACTIONS (9)
  - Off label use [None]
  - Haemodynamic instability [None]
  - Tachycardia [None]
  - Generalised oedema [None]
  - Anuria [None]
  - Distributive shock [None]
  - Blood pressure decreased [None]
  - Metabolic acidosis [None]
  - Hyperlactacidaemia [None]
